FAERS Safety Report 6408956-2 (Version None)
Quarter: 2009Q4

REPORT INFORMATION
  Report Type: 
  Country: None (occurrence: None)
  Receive Date: 20091021
  Receipt Date: 20091009
  Transmission Date: 20100525
  Serious: Yes (Hospitalization)
  Sender: FDA-Public Use
  Company Number: JP-PFIZER INC-2009255498

PATIENT
  Age: 43 Year

DRUGS (1)
  1. SUNITINIB MALATE [Suspect]
     Indication: PHAEOCHROMOCYTOMA
     Dosage: 50 MG, DAILY
     Dates: start: 20090618

REACTIONS (1)
  - HYPOTHYROIDISM [None]
